FAERS Safety Report 11217019 (Version 1)
Quarter: 2015Q2

REPORT INFORMATION
  Report Type: Spontaneous
  Country: US (occurrence: US)
  Receive Date: 20150624
  Receipt Date: 20150624
  Transmission Date: 20150821
  Serious: No
  Sender: FDA-Public Use
  Company Number: US-ASTRAZENECA-2015SE59675

PATIENT
  Sex: Male
  Weight: 73.5 kg

DRUGS (3)
  1. GLUCOTOL [Concomitant]
     Dosage: 2.5 MG
  2. FARXIGA [Suspect]
     Active Substance: DAPAGLIFLOZIN PROPANEDIOL
     Dosage: 5 MG
     Route: 048
  3. METFORMIN [Concomitant]
     Active Substance: METFORMIN HYDROCHLORIDE

REACTIONS (5)
  - Drug ineffective [Unknown]
  - Asthenia [Unknown]
  - Pollakiuria [Unknown]
  - Intentional product misuse [Unknown]
  - Weight decreased [Unknown]
